FAERS Safety Report 15109338 (Version 1)
Quarter: 2018Q3

REPORT INFORMATION
  Report Type: Spontaneous
  Country: IT (occurrence: IT)
  Receive Date: 20180705
  Receipt Date: 20180705
  Transmission Date: 20181010
  Serious: Yes (Other)
  Sender: FDA-Public Use
  Company Number: IT-TEVA-2018-IT-921031

PATIENT
  Age: 73 Year
  Sex: Male

DRUGS (3)
  1. BACTRIM 160 MG + 800 MG COMPRESSE SOLUBILI [Concomitant]
     Indication: URINARY TRACT INFECTION
     Route: 048
  2. MEROPENEM TRIHYDRATE [Concomitant]
     Active Substance: MEROPENEM
     Route: 041
  3. VORICONAZOLE. [Suspect]
     Active Substance: VORICONAZOLE
     Indication: BRONCHOPULMONARY ASPERGILLOSIS
     Dosage: 400 MILLIGRAM DAILY;
     Route: 065
     Dates: start: 20180320, end: 20180507

REACTIONS (2)
  - Hepatocellular injury [Unknown]
  - Cholestasis [Unknown]

NARRATIVE: CASE EVENT DATE: 20180507
